FAERS Safety Report 5423661-7 (Version None)
Quarter: 2007Q3

REPORT INFORMATION
  Report Type: 
  Country: None (occurrence: None)
  Receive Date: 20070823
  Receipt Date: 20070814
  Transmission Date: 20080115
  Serious: Yes (Other)
  Sender: FDA-Public Use
  Company Number: A0673103A

PATIENT
  Age: 42 Year
  Sex: Female

DRUGS (1)
  1. COREG CR [Suspect]
     Indication: DRUG USE FOR UNKNOWN INDICATION
     Dosage: 20MG UNKNOWN
     Route: 048
     Dates: start: 20070101

REACTIONS (2)
  - BLOOD CHOLESTEROL INCREASED [None]
  - CARDIAC FAILURE [None]
